FAERS Safety Report 17978920 (Version 2)
Quarter: 2020Q4

REPORT INFORMATION
  Report Type: Spontaneous
  Country: US (occurrence: US)
  Receive Date: 20200703
  Receipt Date: 20201127
  Transmission Date: 20210113
  Serious: No
  Sender: FDA-Public Use
  Company Number: US-TEVA-2020-US-1796506

PATIENT
  Age: 62 Year
  Sex: Female

DRUGS (7)
  1. FLECAINIDE [Concomitant]
     Active Substance: FLECAINIDE
     Route: 065
  2. ZETIA [Concomitant]
     Active Substance: EZETIMIBE
     Route: 065
  3. VITAMIN D3 [Concomitant]
     Active Substance: CHOLECALCIFEROL
  4. COPAXONE [Suspect]
     Active Substance: GLATIRAMER ACETATE
     Indication: MULTIPLE SCLEROSIS
     Route: 058
     Dates: start: 20180207
  5. ELIQUIS [Concomitant]
     Active Substance: APIXABAN
     Route: 065
  6. METOPROL TAR [Concomitant]
     Route: 065
  7. FISH OIL CAPS [Concomitant]
     Route: 065

REACTIONS (2)
  - Injection site haemorrhage [Not Recovered/Not Resolved]
  - Palpitations [Not Recovered/Not Resolved]
